FAERS Safety Report 8515818-3 (Version None)
Quarter: 2012Q3

REPORT INFORMATION
  Report Type: 
  Country: None (occurrence: None)
  Receive Date: 20120705
  Receipt Date: 20120626
  Transmission Date: 20120928
  Serious: Yes (Hospitalization, Other)
  Sender: FDA-Public Use
  Company Number: 2012SP025029

PATIENT
  Age: 62 Year
  Sex: Male
  Weight: 68 kg

DRUGS (13)
  1. SALIVEHT [Concomitant]
  2. TELAVIC (ANTIVIRALS NOS) [Suspect]
     Indication: HEPATITIS C
     Dosage: 2250 MG;QD;PO 1500 MG;QD;PO
     Route: 048
     Dates: start: 20120305, end: 20120501
  3. TELAVIC (ANTIVIRALS NOS) [Suspect]
     Indication: HEPATITIS C
     Dosage: 2250 MG;QD;PO 1500 MG;QD;PO
     Route: 048
     Dates: start: 20120502, end: 20120528
  4. ADALAT CC [Concomitant]
  5. ZOLPIDEM [Concomitant]
  6. REBETOL [Suspect]
     Indication: HEPATITIS C
     Dosage: 800 MG;QD;PO 400 MG;QD; PO 200 MG;QD;PO
     Route: 048
     Dates: start: 20120326, end: 20120408
  7. REBETOL [Suspect]
     Indication: HEPATITIS C
     Dosage: 800 MG;QD;PO 400 MG;QD; PO 200 MG;QD;PO
     Route: 048
     Dates: start: 20120409
  8. REBETOL [Suspect]
     Indication: HEPATITIS C
     Dosage: 800 MG;QD;PO 400 MG;QD; PO 200 MG;QD;PO
     Route: 048
     Dates: start: 20120305, end: 20120325
  9. PEG-INTRON [Suspect]
     Indication: HEPATITIS C
     Dosage: 1.5 MCG/KG;QW;SC 1.3 MCG/KG;QW;SC
     Route: 058
     Dates: start: 20120423
  10. PEG-INTRON [Suspect]
     Indication: HEPATITIS C
     Dosage: 1.5 MCG/KG;QW;SC 1.3 MCG/KG;QW;SC
     Route: 058
     Dates: start: 20120305, end: 20120416
  11. LIVALO [Concomitant]
  12. CANDESARTAN CILEXETIL [Concomitant]
  13. URSO 250 [Concomitant]

REACTIONS (5)
  - ORAL DISCOMFORT [None]
  - HYPERURICAEMIA [None]
  - ERYTHEMA [None]
  - RASH PRURITIC [None]
  - BLOOD CREATININE INCREASED [None]
